FAERS Safety Report 16451589 (Version 1)
Quarter: 2019Q2

REPORT INFORMATION
  Report Type: Spontaneous
  Country: US (occurrence: US)
  Receive Date: 20190619
  Receipt Date: 20190619
  Transmission Date: 20190711
  Serious: No
  Sender: FDA-Public Use
  Company Number: US-PFIZER INC-2019256570

PATIENT
  Age: 9 Decade
  Sex: Female

DRUGS (1)
  1. GABAPENTIN. [Suspect]
     Active Substance: GABAPENTIN
     Dosage: UNK UNK, 3X/DAY

REACTIONS (4)
  - Rash [Unknown]
  - Skin irritation [Unknown]
  - Urticaria [Unknown]
  - Pruritus [Unknown]
